FAERS Safety Report 7339729-4 (Version None)
Quarter: 2011Q1

REPORT INFORMATION
  Report Type: 
  Country: None (occurrence: None)
  Receive Date: 20110309
  Receipt Date: 20110228
  Transmission Date: 20110831
  Serious: Yes (Hospitalization)
  Sender: FDA-Public Use
  Company Number: FR-TEVA-269675ISR

PATIENT
  Age: 67 Year
  Sex: Male

DRUGS (1)
  1. PACLITAXEL [Suspect]
     Indication: METASTATIC CARCINOMA OF THE BLADDER

REACTIONS (8)
  - PNEUMOPERITONEUM [None]
  - PNEUMATOSIS INTESTINALIS [None]
  - ABDOMINAL PAIN [None]
  - PANCYTOPENIA [None]
  - ANAEMIA [None]
  - THROMBOCYTOPENIA [None]
  - NEUTROPENIA [None]
  - VOMITING [None]
